FAERS Safety Report 6133413-0 (Version None)
Quarter: 2009Q1

REPORT INFORMATION
  Report Type: 
  Country: None (occurrence: None)
  Receive Date: 20090326
  Receipt Date: 20090318
  Transmission Date: 20090719
  Serious: Yes (Other)
  Sender: FDA-Public Use
  Company Number: PHHY2009BR06135

PATIENT
  Sex: Male
  Weight: 89 kg

DRUGS (3)
  1. FORASEQ [Suspect]
     Indication: CHRONIC OBSTRUCTIVE PULMONARY DISEASE
     Dosage: 2 DF/BID
  2. FORASEQ [Suspect]
     Dosage: 1 DF, TID
  3. SPIRIVA [Concomitant]
     Indication: CHRONIC OBSTRUCTIVE PULMONARY DISEASE
     Dosage: 18 UG, QD

REACTIONS (9)
  - ANXIETY [None]
  - ASTHENIA [None]
  - BLOOD DISORDER [None]
  - DYSPNOEA [None]
  - FEAR [None]
  - INCORRECT DOSE ADMINISTERED [None]
  - MUSCULAR WEAKNESS [None]
  - PAIN IN EXTREMITY [None]
  - WHITE BLOOD CELL DISORDER [None]
